FAERS Safety Report 5916746-X (Version None)
Quarter: 2008Q4

REPORT INFORMATION
  Report Type: 
  Country: None (occurrence: None)
  Receive Date: 20081009
  Receipt Date: 20080929
  Transmission Date: 20090506
  Serious: Yes (Other)
  Sender: FDA-Public Use
  Company Number: IMP_03899_2008

PATIENT
  Age: 19 Year
  Sex: Female

DRUGS (2)
  1. CLARITIN-D [Suspect]
     Indication: SEASONAL ALLERGY
     Dosage: (20 DF 1X, NOT THE PRESCRIBED AMOUNT)
     Dates: start: 20080928
  2. BENADRYL [Suspect]
     Indication: DRUG USE FOR UNKNOWN INDICATION
     Dosage: (DF)
     Dates: start: 20080928

REACTIONS (1)
  - INCORRECT DOSE ADMINISTERED [None]
